FAERS Safety Report 16170087 (Version 2)
Quarter: 2019Q2

REPORT INFORMATION
  Report Type: Report from Study
  Country: CO (occurrence: CO)
  Receive Date: 20190408
  Receipt Date: 20190420
  Transmission Date: 20190711
  Serious: Yes (Life-Threatening, Hospitalization)
  Sender: FDA-Public Use
  Company Number: PHHY2018CO075591

PATIENT
  Sex: Female
  Weight: 50 kg

DRUGS (5)
  1. REVOLADE [Suspect]
     Active Substance: ELTROMBOPAG
     Indication: IMMUNE THROMBOCYTOPENIC PURPURA
     Dosage: 100 MG, QD
     Route: 048
     Dates: start: 20180428
  2. REVOLADE [Suspect]
     Active Substance: ELTROMBOPAG
     Dosage: 50 MG, QD
     Route: 048
     Dates: start: 20180528
  3. REVOLADE [Suspect]
     Active Substance: ELTROMBOPAG
     Dosage: 100 MG, QOD
     Route: 048
     Dates: start: 201808
  4. RANITIDINE. [Concomitant]
     Active Substance: RANITIDINE
     Indication: PRODUCT USED FOR UNKNOWN INDICATION
     Route: 065
  5. REVOLADE [Suspect]
     Active Substance: ELTROMBOPAG
     Dosage: 50 MG, QD
     Route: 048

REACTIONS (13)
  - Petechiae [Unknown]
  - Platelet count increased [Unknown]
  - Ecchymosis [Unknown]
  - Inappropriate schedule of product administration [Unknown]
  - Systemic lupus erythematosus [Unknown]
  - Somnolence [Unknown]
  - Immune thrombocytopenic purpura [Unknown]
  - Platelet count decreased [Recovering/Resolving]
  - Depressed mood [Unknown]
  - Disease recurrence [Unknown]
  - Pain in extremity [Unknown]
  - Arthralgia [Unknown]
  - Incorrect dose administered [Unknown]
